FAERS Safety Report 5836883-8 (Version None)
Quarter: 2008Q3

REPORT INFORMATION
  Report Type: 
  Country: None (occurrence: None)
  Receive Date: 20080806
  Receipt Date: 20080806
  Transmission Date: 20090109
  Serious: Yes (Hospitalization)
  Sender: FDA-Public Use
  Company Number: None

PATIENT
  Age: 19 Year
  Sex: Male
  Weight: 62.3 kg

DRUGS (7)
  1. VANCOMYCIN [Suspect]
     Indication: PYREXIA
     Dosage: 1750MG Q6H IV DRIP
     Route: 041
     Dates: start: 20080727, end: 20080803
  2. KEPPRA [Concomitant]
  3. CEREBYX [Concomitant]
  4. HEPARIN [Concomitant]
  5. LEVAQUIN [Concomitant]
  6. ZOSYN [Concomitant]
  7. PEPCID [Concomitant]

REACTIONS (1)
  - RENAL FAILURE ACUTE [None]
